FAERS Safety Report 20593511 (Version 1)
Quarter: 2022Q1

REPORT INFORMATION
  Report Type: Spontaneous
  Country: US (occurrence: None)
  Receive Date: 20220315
  Receipt Date: 20220315
  Transmission Date: 20220424
  Serious: No
  Sender: FDA-Public Use
  Company Number: US-ROCHE-2947959

PATIENT
  Sex: Female
  Weight: 88.530 kg

DRUGS (6)
  1. XOLAIR [Suspect]
     Active Substance: OMALIZUMAB
     Indication: Asthma
     Route: 065
     Dates: start: 20210318
  2. NASACORT ALLERGY 24HR [Concomitant]
     Active Substance: TRIAMCINOLONE ACETONIDE
     Route: 045
     Dates: start: 20210225
  3. TRIAMCINOLONE [Concomitant]
     Active Substance: TRIAMCINOLONE
     Dates: start: 20210225
  4. ZYRTEC (UNITED STATES) [Concomitant]
     Route: 048
     Dates: start: 20210225
  5. ATARAX [Concomitant]
     Active Substance: HYDROXYZINE HYDROCHLORIDE
     Route: 048
     Dates: start: 20210225
  6. EPINEPHRINE [Concomitant]
     Active Substance: EPINEPHRINE
     Dates: start: 20210225

REACTIONS (1)
  - Hypersensitivity [Unknown]
